FAERS Safety Report 10007131 (Version 1)
Quarter: 2014Q1

REPORT INFORMATION
  Report Type: Spontaneous
  Country: US (occurrence: None)
  Receive Date: 20140312
  Receipt Date: 20140312
  Transmission Date: 20141002
  Serious: Yes (Other)
  Sender: FDA-Public Use
  Company Number: None

PATIENT
  Age: 35 Year
  Sex: Female
  Weight: 97.07 kg

DRUGS (1)
  1. CARMEX HEALING LIP BALM [Suspect]
     Indication: CHAPPED LIPS
     Dates: start: 20140310, end: 20140311

REACTIONS (4)
  - Lip swelling [None]
  - Gingival swelling [None]
  - Burning sensation [None]
  - Paraesthesia oral [None]
